FAERS Safety Report 9648027 (Version 2)
Quarter: 2013Q4

REPORT INFORMATION
  Report Type: Report from Study
  Country: JP (occurrence: JP)
  Receive Date: 20131028
  Receipt Date: 20131212
  Transmission Date: 20140711
  Serious: Yes (Other)
  Sender: FDA-Public Use
  Company Number: JP-VERTEX PHARMACEUTICALS INC-2013-010671

PATIENT
  Age: 69 Year
  Sex: Female

DRUGS (12)
  1. VX-950 (TELAPREVIR) [Suspect]
     Indication: CHRONIC HEPATITIS C
     Dosage: 1500 MG, QD
     Route: 048
     Dates: start: 20120625, end: 20120729
  2. VX-950 (TELAPREVIR) [Suspect]
     Dosage: 1000 MG, QD
     Route: 048
     Dates: start: 20120730, end: 20120916
  3. REBETOL [Suspect]
     Indication: CHRONIC HEPATITIS C
     Dosage: 600 MG, QD
     Route: 048
     Dates: start: 20120625, end: 20120708
  4. REBETOL [Suspect]
     Dosage: 400 MG, QD
     Route: 048
     Dates: start: 20120709, end: 20120722
  5. REBETOL [Suspect]
     Dosage: 200 MG, QD
     Route: 048
     Dates: start: 20120723, end: 20121022
  6. PEGINTRON [Suspect]
     Indication: CHRONIC HEPATITIS C
     Dosage: 1.56 ?G/KG, QW
     Route: 058
     Dates: start: 20120625, end: 20120701
  7. PEGINTRON [Suspect]
     Dosage: 1.25 ?G/KG, QW
     Route: 058
     Dates: start: 20120702, end: 20120702
  8. PEGINTRON [Suspect]
     Dosage: 0.78 ?G/KG, QW
     Route: 058
     Dates: start: 20120709, end: 20120709
  9. PEGINTRON [Suspect]
     Dosage: 0.62 ?G/KG ALTERNATE WEEKS
     Route: 058
     Dates: start: 20120716, end: 20121008
  10. PEGINTRON [Suspect]
     Dosage: 0.62 ?G/KG, UNK
     Route: 058
     Dates: end: 20121022
  11. TAKEPRON [Concomitant]
     Dosage: 15 MG, QD
     Route: 048
     Dates: start: 20120702, end: 20121021
  12. MUCOSTA [Concomitant]
     Dosage: UNK, PRN
     Route: 048
     Dates: start: 20120924

REACTIONS (1)
  - Autoimmune haemolytic anaemia [Recovered/Resolved]
